FAERS Safety Report 8806984 (Version 2)
Quarter: 2015Q2

REPORT INFORMATION
  Report Type: Report from Study
  Country: US (occurrence: US)
  Receive Date: 20120925
  Receipt Date: 20150622
  Transmission Date: 20150821
  Serious: Yes (Other)
  Sender: FDA-Public Use
  Company Number: US-ROCHE-1126084

PATIENT
  Sex: Female

DRUGS (18)
  1. OXALIPLATIN. [Concomitant]
     Active Substance: OXALIPLATIN
  2. ACCOLATE [Concomitant]
     Active Substance: ZAFIRLUKAST
  3. NEULASTA [Concomitant]
     Active Substance: PEGFILGRASTIM
  4. AVASTIN [Suspect]
     Active Substance: BEVACIZUMAB
     Indication: COLON CANCER
     Route: 042
     Dates: end: 20080529
  5. AVASTIN [Suspect]
     Active Substance: BEVACIZUMAB
     Indication: METASTASES TO LIVER
     Route: 042
     Dates: start: 20080717
  6. CAMPTOSAR [Concomitant]
     Active Substance: IRINOTECAN HYDROCHLORIDE
     Route: 042
  7. POTASSIUM [Concomitant]
     Active Substance: POTASSIUM
     Route: 042
  8. DECADRON [Concomitant]
     Active Substance: DEXAMETHASONE
     Route: 042
  9. XELODA [Suspect]
     Active Substance: CAPECITABINE
     Indication: COLON CANCER
     Route: 042
     Dates: start: 20080717
  10. ZOFRAN [Concomitant]
     Active Substance: ONDANSETRON HYDROCHLORIDE
     Route: 042
  11. PEPCID [Concomitant]
     Active Substance: FAMOTIDINE
  12. BACTRIM [Concomitant]
     Active Substance: SULFAMETHOXAZOLE\TRIMETHOPRIM
  13. XELODA [Suspect]
     Active Substance: CAPECITABINE
     Indication: METASTASES TO LIVER
     Dosage: 3 IN MORNING 2 AT NIGHT
     Route: 048
     Dates: end: 20080327
  14. BENADRYL [Concomitant]
     Active Substance: DIPHENHYDRAMINE HYDROCHLORIDE
     Route: 048
  15. ATENOLOL. [Concomitant]
     Active Substance: ATENOLOL
  16. OMEPRAZOLE. [Concomitant]
     Active Substance: OMEPRAZOLE
  17. TYLENOL [Concomitant]
     Active Substance: ACETAMINOPHEN
     Route: 065
  18. CIPRO [Concomitant]
     Active Substance: CIPROFLOXACIN HYDROCHLORIDE
     Indication: URINARY TRACT INFECTION

REACTIONS (15)
  - Nausea [Recovered/Resolved]
  - Urinary tract infection [Unknown]
  - White blood cell count decreased [Unknown]
  - Paraesthesia [Unknown]
  - Platelet count decreased [Unknown]
  - Nervousness [Unknown]
  - Disease progression [Unknown]
  - Abdominal pain [Unknown]
  - Abdominal tenderness [Unknown]
  - Gingival bleeding [Recovered/Resolved]
  - Hypertension [Unknown]
  - Dry skin [Unknown]
  - Back pain [Unknown]
  - Skin hyperpigmentation [Unknown]
  - Stress [Unknown]
